FAERS Safety Report 5581785-8 (Version None)
Quarter: 2008Q1

REPORT INFORMATION
  Report Type: 
  Country: None (occurrence: None)
  Receive Date: 20080104
  Receipt Date: 20071226
  Transmission Date: 20080703
  Serious: Yes (Other)
  Sender: FDA-Public Use
  Company Number: US-PFIZER INC-2007083635

PATIENT
  Sex: Male
  Weight: 109.8 kg

DRUGS (12)
  1. EXUBERA [Suspect]
     Indication: DIABETES MELLITUS
     Route: 055
     Dates: start: 20070126, end: 20071001
  2. VYTORIN [Concomitant]
     Route: 048
  3. COZAAR [Concomitant]
     Route: 048
  4. ACETYLSALICYLIC ACID SRT [Concomitant]
     Route: 048
  5. LANTUS [Concomitant]
  6. TOPROL-XL [Concomitant]
     Route: 048
  7. TRICOR [Concomitant]
     Route: 048
  8. GLUCOPHAGE [Concomitant]
     Route: 048
  9. NOVOLOG [Concomitant]
  10. ACTOS [Concomitant]
     Route: 048
  11. DURAGESIC-100 [Concomitant]
     Route: 061
  12. ALL OTHER NON-THERAPEUTIC PRODUCTS [Concomitant]

REACTIONS (9)
  - CHEST INJURY [None]
  - CHEST PAIN [None]
  - DYSPNOEA [None]
  - ESSENTIAL HYPERTENSION [None]
  - FALL [None]
  - HYPERCHOLESTEROLAEMIA [None]
  - LUNG DISORDER [None]
  - LYMPHADENOPATHY [None]
  - NON-SMALL CELL LUNG CANCER [None]
